FAERS Safety Report 21965091 (Version 2)
Quarter: 2023Q1

REPORT INFORMATION
  Report Type: Spontaneous
  Country: FR (occurrence: FR)
  Receive Date: 20230207
  Receipt Date: 20230214
  Transmission Date: 20230418
  Serious: Yes (Hospitalization, Other)
  Sender: FDA-Public Use
  Company Number: FR-BAXTER-2023BAX011960

PATIENT
  Age: 79 Year
  Sex: Male
  Weight: 86 kg

DRUGS (16)
  1. DOXORUBICIN [Suspect]
     Active Substance: DOXORUBICIN
     Indication: Diffuse large B-cell lymphoma stage IV
     Dosage: UNK, 1Q3W, DOSAGE FORM: SOLUTION FOR INFUSION, AS PART OF EPCORITAMAB + R-MINI-CHOP REGIMEN
     Route: 042
  2. DOXORUBICIN [Suspect]
     Active Substance: DOXORUBICIN
     Indication: Diffuse large B-cell lymphoma
  3. CYCLOPHOSPHAMIDE [Suspect]
     Active Substance: CYCLOPHOSPHAMIDE
     Indication: Diffuse large B-cell lymphoma stage IV
     Dosage: UNK, 1Q3W, DOSAGE FORM: POWDER FOR SOLUTION FOR INJECTION, AS PART OF EPCORITAMAB + R-MINI-CHOP REGI
     Route: 042
  4. CYCLOPHOSPHAMIDE [Suspect]
     Active Substance: CYCLOPHOSPHAMIDE
     Indication: Diffuse large B-cell lymphoma
  5. EPCORITAMAB [Suspect]
     Active Substance: EPCORITAMAB
     Indication: Diffuse large B-cell lymphoma stage IV
     Dosage: PRIMING DOSE, SINGLE, AS PART OF EPCORITAMAB + R-MINI-CHOP REGIMEN
     Route: 058
  6. EPCORITAMAB [Suspect]
     Active Substance: EPCORITAMAB
     Indication: Diffuse large B-cell lymphoma
     Dosage: INTERMEDIATE DOSE, SINGLE, AS PART OF EPCORITAMAB + R-MINI-CHOP REGIMEN
     Route: 058
  7. EPCORITAMAB [Suspect]
     Active Substance: EPCORITAMAB
     Dosage: FULL DOSE, 48 MILLIGRAM, WEEKLY, AS PART OF EPCORITAMAB + R-MINI-CHOP REGIMEN
     Route: 058
  8. RITUXIMAB [Suspect]
     Active Substance: RITUXIMAB
     Indication: Diffuse large B-cell lymphoma stage IV
     Dosage: UNK, 1Q3W, AS PART OF EPCORITAMAB + R-MINI-CHOP REGIMEN
     Route: 042
  9. RITUXIMAB [Suspect]
     Active Substance: RITUXIMAB
     Indication: Diffuse large B-cell lymphoma
  10. VINCRISTINE [Suspect]
     Active Substance: VINCRISTINE
     Indication: Diffuse large B-cell lymphoma stage IV
     Dosage: UNK, 1Q3W, AS PART OF EPCORITAMAB + R-MINI-CHOP REGIMEN
     Route: 042
  11. VINCRISTINE [Suspect]
     Active Substance: VINCRISTINE
     Indication: Diffuse large B-cell lymphoma
  12. PREDNISONE [Suspect]
     Active Substance: PREDNISONE
     Indication: Diffuse large B-cell lymphoma stage IV
     Dosage: UNK, AS PART OF EPCORITAMAB + R-MINI-CHOP REGIMEN
     Route: 065
  13. PREDNISONE [Suspect]
     Active Substance: PREDNISONE
     Indication: Diffuse large B-cell lymphoma
  14. Solupred [Concomitant]
     Indication: Prophylaxis
     Dosage: 100 MG, ONCE
     Route: 048
     Dates: start: 20230105
  15. SOLU-MEDROL [Concomitant]
     Active Substance: METHYLPREDNISOLONE SODIUM SUCCINATE
     Indication: Prophylaxis
     Dosage: 80 MG
     Route: 048
     Dates: start: 20230106, end: 20230109
  16. SOLU-MEDROL [Concomitant]
     Active Substance: METHYLPREDNISOLONE SODIUM SUCCINATE
     Dosage: 80 MG
     Route: 042
     Dates: start: 20230111, end: 20230118

REACTIONS (3)
  - Cytokine release syndrome [Recovered/Resolved]
  - Pyrexia [Not Recovered/Not Resolved]
  - Pyrexia [Not Recovered/Not Resolved]

NARRATIVE: CASE EVENT DATE: 20230119
